FAERS Safety Report 7768004-9 (Version None)
Quarter: 2011Q3

REPORT INFORMATION
  Report Type: 
  Country: None (occurrence: None)
  Receive Date: 20110922
  Receipt Date: 20110714
  Transmission Date: 20111222
  Serious: No
  Sender: FDA-Public Use
  Company Number: US-ASTRAZENECA-2011SE42446

PATIENT
  Age: 70 Year
  Sex: Male

DRUGS (8)
  1. PAXIL [Concomitant]
     Indication: DEPRESSION
  2. VENTOLIN HFA [Concomitant]
     Indication: CHRONIC OBSTRUCTIVE PULMONARY DISEASE
  3. ASMANEX TWISTHALER [Concomitant]
     Indication: CHRONIC OBSTRUCTIVE PULMONARY DISEASE
  4. SEROQUEL XR [Suspect]
     Indication: DEPRESSION
     Route: 048
     Dates: start: 20110301, end: 20110710
  5. METFORMIN [Concomitant]
     Indication: DIABETES MELLITUS
  6. GLYPIZIDE [Concomitant]
     Indication: DIABETES MELLITUS
  7. PRILOSEC [Concomitant]
     Indication: GASTROOESOPHAGEAL REFLUX DISEASE
  8. HYDROCHLOROTHIAZIDE [Concomitant]
     Indication: HYPERTENSION

REACTIONS (3)
  - FEELING ABNORMAL [None]
  - DEPRESSION [None]
  - DRUG DOSE OMISSION [None]
